FAERS Safety Report 8246327-7 (Version None)
Quarter: 2012Q1

REPORT INFORMATION
  Report Type: 
  Country: None (occurrence: None)
  Receive Date: 20120329
  Receipt Date: 20120329
  Transmission Date: 20120608
  Serious: Yes (Other)
  Sender: FDA-Public Use
  Company Number: None

PATIENT
  Age: 21 Year
  Sex: Male

DRUGS (2)
  1. LUVOX CR [Concomitant]
  2. RITALIN LA [Suspect]
     Dosage: 120 TWO PO  BID
     Route: 048
     Dates: start: 20120306

REACTIONS (4)
  - IMPULSIVE BEHAVIOUR [None]
  - PRODUCT SUBSTITUTION ISSUE [None]
  - ILL-DEFINED DISORDER [None]
  - PSYCHOMOTOR HYPERACTIVITY [None]
